FAERS Safety Report 18986196 (Version 1)
Quarter: 2021Q1

REPORT INFORMATION
  Report Type: Spontaneous
  Country: SA (occurrence: SA)
  Receive Date: 20210309
  Receipt Date: 20210309
  Transmission Date: 20210420
  Serious: Yes (Death, Hospitalization, Other)
  Sender: FDA-Public Use
  Company Number: SA-LUPIN PHARMACEUTICALS INC.-2021-02890

PATIENT
  Age: 64 Year
  Sex: Male

DRUGS (10)
  1. DEFERASIROX. [Suspect]
     Active Substance: DEFERASIROX
     Indication: CHELATION THERAPY
     Dosage: UNK
     Route: 065
  2. PIPERACILLIN/TAZOBACTAM [Concomitant]
     Active Substance: PIPERACILLIN SODIUM\TAZOBACTAM SODIUM
     Indication: ANTIBIOTIC THERAPY
     Dosage: UNK
     Route: 065
  3. PANTOPRAZOLE [Concomitant]
     Active Substance: PANTOPRAZOLE
     Indication: PRODUCT USED FOR UNKNOWN INDICATION
     Dosage: UNK (ROUTE: INFUSION)
  4. TACROLIMUS. [Suspect]
     Active Substance: TACROLIMUS
     Indication: IMMUNOSUPPRESSANT DRUG THERAPY
     Dosage: UNK
     Route: 065
  5. IMIPENEM [Concomitant]
     Active Substance: IMIPENEM
     Indication: ANTIBIOTIC THERAPY
     Dosage: UNK
     Route: 065
  6. FLUCONAZOLE. [Concomitant]
     Active Substance: FLUCONAZOLE
     Indication: MUCORMYCOSIS
     Dosage: UNK
     Route: 065
  7. AZACITIDINE. [Suspect]
     Active Substance: AZACITIDINE
     Indication: MYELODYSPLASTIC SYNDROME
     Dosage: 8 CYCLES
     Route: 065
  8. FLUCONAZOLE. [Concomitant]
     Active Substance: FLUCONAZOLE
     Indication: PROPHYLAXIS
  9. DEFERASIROX. [Suspect]
     Active Substance: DEFERASIROX
     Indication: IRON OVERLOAD
  10. FILGRASTIM [Concomitant]
     Active Substance: FILGRASTIM
     Indication: NEUTROPENIA
     Dosage: UNK
     Route: 065

REACTIONS (4)
  - Weight decreased [Unknown]
  - Multiple organ dysfunction syndrome [Fatal]
  - Septic shock [Fatal]
  - Mucormycosis [Fatal]
